FAERS Safety Report 18017965 (Version 1)
Quarter: 2020Q3

REPORT INFORMATION
  Report Type: Spontaneous
  Country: US (occurrence: US)
  Receive Date: 20200713
  Receipt Date: 20200713
  Transmission Date: 20201103
  Serious: Yes (Death, Hospitalization, Other)
  Sender: FDA-Public Use
  Company Number: US-AUROBINDO-AUR-APL-2020-032785

PATIENT
  Age: 78 Year
  Sex: Male

DRUGS (1)
  1. LIDOCAINE 20MG/ML [Suspect]
     Active Substance: LIDOCAINE
     Indication: PRODUCT USED FOR UNKNOWN INDICATION
     Dosage: UNK
     Route: 042

REACTIONS (4)
  - Wrong product administered [Fatal]
  - Cardiac arrest [Fatal]
  - Shock [Fatal]
  - Cardiac tamponade [Fatal]
